FAERS Safety Report 4795661-1 (Version None)
Quarter: 2005Q4

REPORT INFORMATION
  Report Type: 
  Country: None (occurrence: None)
  Receive Date: 20051003
  Receipt Date: 20050718
  Transmission Date: 20060501
  Serious: Yes (Other)
  Sender: FDA-Public Use
  Company Number: JP-GILEAD-2005-0008597

PATIENT
  Age: 54 Year
  Sex: Male

DRUGS (2)
  1. HEPSERA [Suspect]
     Indication: PATHOGEN RESISTANCE
     Route: 048
  2. LAMIVUDINE [Suspect]
     Indication: HEPATIC CIRRHOSIS
     Route: 048

REACTIONS (2)
  - HEPATITIS [None]
  - LIVER DISORDER [None]
